FAERS Safety Report 6120705-4 (Version None)
Quarter: 2009Q1

REPORT INFORMATION
  Report Type: 
  Country: None (occurrence: None)
  Receive Date: 20090311
  Receipt Date: 20090225
  Transmission Date: 20090719
  Serious: Yes (Death, Life-Threatening, Hospitalization)
  Sender: FDA-Public Use
  Company Number: 187407ISR

PATIENT
  Age: 71 Year
  Sex: Male

DRUGS (12)
  1. AMIODARONE HCL [Suspect]
     Indication: TACHYARRHYTHMIA
     Dosage: 200 MG ORAL
     Route: 048
  2. DIGITOXIN [Suspect]
     Indication: TACHYARRHYTHMIA
     Dosage: 0.07 MG ORAL
     Route: 048
  3. INSULIN HUMAN [Concomitant]
  4. ALLOPURINOL [Concomitant]
  5. DIAZEPAM [Concomitant]
  6. VALSARTAN [Concomitant]
  7. FLUVASTATIN SODIUM [Concomitant]
  8. PANTOPRAZOLE SODIUM [Concomitant]
  9. ISOPHANE INSULIN [Concomitant]
  10. TORASEMIDE [Concomitant]
  11. SERETIDE [Concomitant]
  12. TIOTROPIUM BROMIDE [Concomitant]

REACTIONS (2)
  - BRADYARRHYTHMIA [None]
  - GENERAL PHYSICAL HEALTH DETERIORATION [None]
